FAERS Safety Report 5159819-4 (Version None)
Quarter: 2006Q4

REPORT INFORMATION
  Report Type: 
  Country: None (occurrence: None)
  Receive Date: 20061129
  Receipt Date: 20060118
  Transmission Date: 20070319
  Serious: No
  Sender: FDA-Public Use
  Company Number: 2006-00160

PATIENT
  Age: 52 Year
  Sex: Female

DRUGS (2)
  1. BUPROPION HCL [Suspect]
     Indication: DRUG USE FOR UNKNOWN INDICATION
     Dosage: 100MG TWICE PER DAY
     Route: 048
     Dates: start: 20050714, end: 20060114
  2. THYROID TAB [Concomitant]
     Indication: THYROID DISORDER
     Route: 065

REACTIONS (1)
  - ALOPECIA [None]
